FAERS Safety Report 5306274-7 (Version None)
Quarter: 2007Q1

REPORT INFORMATION
  Report Type: 
  Country: None (occurrence: None)
  Receive Date: 20070201
  Receipt Date: 20061114
  Transmission Date: 20070707
  Serious: No
  Sender: FDA-Public Use
  Company Number: 2006PV025214

PATIENT
  Age: 64 Year
  Sex: Female
  Weight: 79.3795 kg

DRUGS (5)
  1. BYETTA [Suspect]
     Indication: GLUCOSE TOLERANCE IMPAIRED
     Dosage: 5 MCG;BID;SC
     Route: 058
     Dates: start: 20060201
  2. NEXIUM [Concomitant]
  3. DIOVAN [Concomitant]
  4. LODINE [Concomitant]
  5. OMICOR [Concomitant]

REACTIONS (1)
  - BLOOD GLUCOSE INCREASED [None]
